FAERS Safety Report 7657127-0 (Version None)
Quarter: 2011Q3

REPORT INFORMATION
  Report Type: 
  Country: None (occurrence: None)
  Receive Date: 20110804
  Receipt Date: 20110331
  Transmission Date: 20111222
  Serious: No
  Sender: FDA-Public Use
  Company Number: US-GLAXOSMITHKLINE-A0920902A

PATIENT
  Age: 57 Year
  Sex: Female

DRUGS (6)
  1. ADVAIR DISKUS 100/50 [Suspect]
     Indication: CHRONIC OBSTRUCTIVE PULMONARY DISEASE
     Dosage: 2PUFF TWICE PER DAY
     Route: 055
     Dates: start: 20110101, end: 20110301
  2. CRESTOR [Concomitant]
  3. ALBUTEROL SULFATE AUTOHALER [Concomitant]
  4. ADVAIR DISKUS 100/50 [Suspect]
     Dosage: 2PUFF TWICE PER DAY
     Route: 055
     Dates: start: 20110301
  5. NEBULIZER [Concomitant]
  6. TOPROL-XL [Concomitant]

REACTIONS (3)
  - DYSPHONIA [None]
  - THROAT IRRITATION [None]
  - COUGH [None]
